FAERS Safety Report 9859128 (Version 1)
Quarter: 2014Q1

REPORT INFORMATION
  Report Type: Spontaneous
  Country: US (occurrence: US)
  Receive Date: 20140131
  Receipt Date: 20140131
  Transmission Date: 20141002
  Serious: Yes (Hospitalization)
  Sender: FDA-Public Use
  Company Number: US-MALLINCKRODT-T201401084

PATIENT
  Sex: Female

DRUGS (4)
  1. OPTIRAY [Suspect]
     Indication: X-RAY
     Dosage: 5 ML, SINGLE
     Route: 042
     Dates: start: 20140115, end: 20140115
  2. LIDOCAINE [Suspect]
     Indication: ARTHRALGIA
     Dosage: 4 ML, SINGLE
     Route: 065
     Dates: start: 20140115, end: 20140115
  3. MARCAINE [Suspect]
     Indication: ARTHRALGIA
     Dosage: 2 ML, SINGLE
     Route: 065
     Dates: start: 20140115, end: 20140115
  4. KENALOG [Suspect]
     Indication: ARTHRALGIA
     Dosage: 0.6 ML, SINGLE
     Route: 065
     Dates: start: 20140115, end: 20140115

REACTIONS (1)
  - Infection [Not Recovered/Not Resolved]
